FAERS Safety Report 24668727 (Version 3)
Quarter: 2025Q1

REPORT INFORMATION
  Report Type: Report from Study
  Country: US (occurrence: US)
  Receive Date: 20241127
  Receipt Date: 20250107
  Transmission Date: 20250409
  Serious: Yes (Other)
  Sender: SANOFI AVENTIS
  Company Number: US-SA-2024SA344085

PATIENT
  Age: 57 Year
  Sex: Female

DRUGS (3)
  1. DUPIXENT [Suspect]
     Active Substance: DUPILUMAB
     Indication: Asthma
     Dosage: 300 MG, QOW
     Route: 058
  2. DUPIXENT [Suspect]
     Active Substance: DUPILUMAB
     Indication: Post-acute COVID-19 syndrome
  3. DUPIXENT [Suspect]
     Active Substance: DUPILUMAB
     Indication: Chronic rhinosinusitis with nasal polyps

REACTIONS (8)
  - Multiple sclerosis [Unknown]
  - Dyspnoea [Unknown]
  - Wheezing [Unknown]
  - Seasonal allergy [Unknown]
  - Neuralgia [Unknown]
  - Tracheal disorder [Unknown]
  - Viral pharyngitis [Unknown]
  - Product use in unapproved indication [Unknown]
